FAERS Safety Report 5874718-8 (Version None)
Quarter: 2008Q3

REPORT INFORMATION
  Report Type: 
  Country: None (occurrence: None)
  Receive Date: 20080909
  Receipt Date: 20080827
  Transmission Date: 20090109
  Serious: Yes (Other)
  Sender: FDA-Public Use
  Company Number: US-BAYER-200831622NA

PATIENT
  Age: 30 Year
  Sex: Female

DRUGS (1)
  1. MIRENA [Suspect]
     Indication: CONTRACEPTION
     Route: 015
     Dates: start: 20080604, end: 20080820

REACTIONS (4)
  - ABDOMINAL PAIN [None]
  - IUCD COMPLICATION [None]
  - PAIN [None]
  - VAGINAL HAEMORRHAGE [None]
